FAERS Safety Report 10542351 (Version 2)
Quarter: 2014Q4

REPORT INFORMATION
  Report Type: Spontaneous
  Country: US (occurrence: US)
  Receive Date: 20141024
  Receipt Date: 20141117
  Transmission Date: 20150529
  Serious: Yes (Hospitalization, Other)
  Sender: FDA-Public Use
  Company Number: US-009507513-1410USA011969

PATIENT
  Age: 41 Year
  Sex: Male

DRUGS (5)
  1. PROTEIN (UNSPECIFIED) [Concomitant]
  2. TESTOSTERONE. [Suspect]
     Active Substance: TESTOSTERONE
     Dosage: 400 MG, QW
  3. METHANDROSTENOLONE [Suspect]
     Active Substance: METHANDROSTENOLONE
     Dosage: 60 MG, QD
  4. IBUPROFEN. [Concomitant]
     Active Substance: IBUPROFEN
     Dosage: 200 MG, APPROXIMATELY 1-2 TIMES PER MONTH
  5. NANDROLONE DECANOATE. [Suspect]
     Active Substance: NANDROLONE DECANOATE
     Dosage: 400 MG, BIW

REACTIONS (3)
  - Cholestasis [Not Recovered/Not Resolved]
  - Nephropathy [Not Recovered/Not Resolved]
  - Acute kidney injury [Not Recovered/Not Resolved]
